FAERS Safety Report 14233561 (Version 2)
Quarter: 2017Q4

REPORT INFORMATION
  Report Type: Report from Study
  Country: US (occurrence: US)
  Receive Date: 20171128
  Receipt Date: 20171130
  Transmission Date: 20180321
  Serious: Yes (Other)
  Sender: FDA-Public Use
  Company Number: US-ALEXION PHARMACEUTICALS INC.-A201712826

PATIENT
  Sex: Male

DRUGS (1)
  1. STRENSIQ [Suspect]
     Active Substance: ASFOTASE ALFA
     Indication: HYPOPHOSPHATASIA
     Route: 065

REACTIONS (10)
  - Ear infection [Unknown]
  - Deafness [Unknown]
  - Rhinorrhoea [Recovering/Resolving]
  - Tympanic membrane perforation [Unknown]
  - Pyrexia [Recovering/Resolving]
  - Tinnitus [Unknown]
  - Nasopharyngitis [Recovering/Resolving]
  - Ear pain [Unknown]
  - Oropharyngeal pain [Recovering/Resolving]
  - Cough [Unknown]
